FAERS Safety Report 16350993 (Version 1)
Quarter: 2019Q2

REPORT INFORMATION
  Report Type: Spontaneous
  Country: US (occurrence: US)
  Receive Date: 20190524
  Receipt Date: 20190524
  Transmission Date: 20190711
  Serious: Yes (Death)
  Sender: FDA-Public Use
  Company Number: US-ROCHE-2324708

PATIENT
  Age: 76 Year
  Sex: Male

DRUGS (13)
  1. HYDROCHLOROTHIAZIDE. [Concomitant]
     Active Substance: HYDROCHLOROTHIAZIDE
     Route: 065
  2. PAROXETINE. [Concomitant]
     Active Substance: PAROXETINE
     Route: 065
  3. BRILINTA [Concomitant]
     Active Substance: TICAGRELOR
     Route: 065
  4. ATORVASTATIN [Concomitant]
     Active Substance: ATORVASTATIN
     Route: 065
  5. METOPROLOL. [Concomitant]
     Active Substance: METOPROLOL
     Route: 065
  6. XARELTO [Concomitant]
     Active Substance: RIVAROXABAN
     Route: 065
  7. LISINOPRIL. [Concomitant]
     Active Substance: LISINOPRIL
     Route: 065
  8. MONTELUKAST [Concomitant]
     Active Substance: MONTELUKAST SODIUM
     Route: 065
  9. PREDNISONE. [Concomitant]
     Active Substance: PREDNISONE
     Route: 065
  10. CILOSTAZOL. [Concomitant]
     Active Substance: CILOSTAZOL
     Route: 065
  11. ESBRIET [Suspect]
     Active Substance: PIRFENIDONE
     Indication: IDIOPATHIC PULMONARY FIBROSIS
     Route: 048
  12. CEFDINIR. [Concomitant]
     Active Substance: CEFDINIR
     Route: 065
  13. FLUTICASONE. [Concomitant]
     Active Substance: FLUTICASONE
     Route: 065

REACTIONS (1)
  - Death [Fatal]

NARRATIVE: CASE EVENT DATE: 20190517
